FAERS Safety Report 12704201 (Version 1)
Quarter: 2016Q3

REPORT INFORMATION
  Report Type: Spontaneous
  Country: IN (occurrence: IN)
  Receive Date: 20160831
  Receipt Date: 20160831
  Transmission Date: 20161109
  Serious: Yes (Other)
  Sender: FDA-Public Use
  Company Number: IN-MYLANLABS-2016M1036946

PATIENT

DRUGS (4)
  1. ALPHADOPA [Suspect]
     Active Substance: METHYLDOPA
     Indication: TAKAYASU^S ARTERITIS
  2. NIFEDIPINE. [Suspect]
     Active Substance: NIFEDIPINE
     Indication: TAKAYASU^S ARTERITIS
  3. LABETALOL [Suspect]
     Active Substance: LABETALOL\LABETALOL HYDROCHLORIDE
     Indication: TAKAYASU^S ARTERITIS
  4. METHYLPREDNISOLONE. [Suspect]
     Active Substance: METHYLPREDNISOLONE
     Indication: IMMUNOSUPPRESSANT DRUG THERAPY

REACTIONS (5)
  - Foetal exposure during pregnancy [Recovered/Resolved]
  - Premature baby [Unknown]
  - Foetal growth restriction [Unknown]
  - Caesarean section [None]
  - Maternal drugs affecting foetus [None]
